FAERS Safety Report 16763893 (Version 2)
Quarter: 2020Q1

REPORT INFORMATION
  Report Type: Spontaneous
  Country: CN (occurrence: CN)
  Receive Date: 20190902
  Receipt Date: 20200114
  Transmission Date: 20200409
  Serious: Yes (Other)
  Sender: FDA-Public Use
  Company Number: CN-PFIZER INC-2019374741

PATIENT
  Age: 50 Year
  Sex: Male

DRUGS (2)
  1. SODIUM CHLORIDE. [Concomitant]
     Active Substance: SODIUM CHLORIDE
     Indication: VEHICLE SOLUTION USE
     Dosage: 100 ML, 2X/DAY
     Route: 041
     Dates: start: 20190820, end: 20190823
  2. VORICONAZOLE. [Suspect]
     Active Substance: VORICONAZOLE
     Indication: LYMPHOMA
     Dosage: 0.2 G, 2X/DAY
     Route: 041
     Dates: start: 20190820, end: 20190823

REACTIONS (4)
  - Visual impairment [Recovering/Resolving]
  - Off label use [Unknown]
  - Product use in unapproved indication [Unknown]
  - Chloropsia [Recovering/Resolving]

NARRATIVE: CASE EVENT DATE: 20190823
